FAERS Safety Report 5818648-6 (Version None)
Quarter: 2008Q3

REPORT INFORMATION
  Report Type: 
  Country: None (occurrence: None)
  Receive Date: 20080717
  Receipt Date: 20080717
  Transmission Date: 20090109
  Serious: No
  Sender: FDA-Public Use
  Company Number: None

PATIENT
  Age: 77 Year
  Sex: Female
  Weight: 71.6683 kg

DRUGS (1)
  1. AMBIEN CR [Suspect]
     Indication: INSOMNIA
     Dosage: 12.5 MG H.S. PRN ORAL
     Route: 048

REACTIONS (4)
  - ABNORMAL BEHAVIOUR [None]
  - FALL [None]
  - MEMORY IMPAIRMENT [None]
  - SOMNAMBULISM [None]
